FAERS Safety Report 11540268 (Version 1)
Quarter: 2015Q3

REPORT INFORMATION
  Report Type: Spontaneous
  Country: US (occurrence: US)
  Receive Date: 20150923
  Receipt Date: 20150923
  Transmission Date: 20151125
  Serious: No
  Sender: FDA-Public Use
  Company Number: US-BAYER-2015-428214

PATIENT
  Age: 62 Year
  Sex: Male
  Weight: 78.46 kg

DRUGS (1)
  1. ALEVE PM [Suspect]
     Active Substance: DIPHENHYDRAMINE HYDROCHLORIDE\NAPROXEN SODIUM
     Indication: INFLAMMATION
     Dosage: 2 DF, QD
     Route: 048
     Dates: start: 20150918

REACTIONS (1)
  - Product use issue [None]
